FAERS Safety Report 5009467-1 (Version None)
Quarter: 2006Q2

REPORT INFORMATION
  Report Type: 
  Country: None (occurrence: None)
  Receive Date: 20060522
  Receipt Date: 20060515
  Transmission Date: 20061013
  Serious: Yes (Other)
  Sender: FDA-Public Use
  Company Number: 2006-05-0032

PATIENT
  Age: 30 Year
  Sex: Male

DRUGS (4)
  1. NASONEX [Suspect]
     Indication: RHINITIS ALLERGIC
     Dosage: 50 MCG NASAL SPRAY
     Dates: start: 20060104, end: 20060301
  2. SINGULAIR [Concomitant]
  3. ELIDEL (PIMECROLIMUS) TOPICALS [Concomitant]
  4. ALLEGRA [Concomitant]

REACTIONS (5)
  - CATARACT [None]
  - ECZEMA [None]
  - HYPERSENSITIVITY [None]
  - NIGHT BLINDNESS [None]
  - VISION BLURRED [None]
